FAERS Safety Report 20883284 (Version 1)
Quarter: 2022Q2

REPORT INFORMATION
  Report Type: Spontaneous
  Country: US (occurrence: None)
  Receive Date: 20220526
  Receipt Date: 20220526
  Transmission Date: 20220720
  Serious: Yes (Disabling)
  Sender: FDA-Public Use
  Company Number: None

PATIENT
  Age: 58 Year
  Sex: Female
  Weight: 117 kg

DRUGS (19)
  1. OXYCODONE [Suspect]
     Active Substance: OXYCODONE
     Indication: Pain management
     Dosage: OTHER QUANTITY : 60 TABLET(S);?FREQUENCY : EVERY 8 HOURS;?
     Route: 048
  2. GABAPENTIN [Concomitant]
     Active Substance: GABAPENTIN
  3. KEPPRA [Concomitant]
     Active Substance: LEVETIRACETAM
  4. METOPROLOL [Concomitant]
     Active Substance: METOPROLOL
  5. BACLOFEN [Concomitant]
     Active Substance: BACLOFEN
  6. EFFEXOR [Concomitant]
     Active Substance: VENLAFAXINE HYDROCHLORIDE
  7. SEROQUEL [Concomitant]
     Active Substance: QUETIAPINE FUMARATE
  8. buspropion [Concomitant]
  9. ATORVASTATIN [Concomitant]
     Active Substance: ATORVASTATIN
  10. LINZESS [Concomitant]
     Active Substance: LINACLOTIDE
  11. LEVOTHYROXINE [Concomitant]
     Active Substance: LEVOTHYROXINE
  12. QULIPTA [Concomitant]
     Active Substance: ATOGEPANT
  13. POTASSIUM [Concomitant]
     Active Substance: POTASSIUM
  14. VITAMINS [Concomitant]
     Active Substance: VITAMINS
  15. CALCIUM [Concomitant]
     Active Substance: CALCIUM
  16. ACETAMINOPHEN [Concomitant]
     Active Substance: ACETAMINOPHEN
  17. tumeric extract [Concomitant]
  18. COLLAGEN [Concomitant]
     Active Substance: COLLAGEN
  19. benefibler [Concomitant]

REACTIONS (1)
  - Product dispensing error [None]

NARRATIVE: CASE EVENT DATE: 20220525
